FAERS Safety Report 7639779-4 (Version None)
Quarter: 2011Q3

REPORT INFORMATION
  Report Type: 
  Country: None (occurrence: None)
  Receive Date: 20110727
  Receipt Date: 20110718
  Transmission Date: 20111222
  Serious: Yes (Other)
  Sender: FDA-Public Use
  Company Number: PHHY2011MX55796

PATIENT
  Sex: Female

DRUGS (4)
  1. ZOLEDRONOC ACID [Suspect]
     Indication: OSTEOPOROSIS
     Dosage: 1 APPLICATION (5MG/100 ML) PER YEAR
     Route: 042
     Dates: start: 20080430
  2. ZOLEDRONOC ACID [Suspect]
     Dosage: 5MG/100 ML PER YEAR
     Route: 042
     Dates: start: 20110601
  3. CORTISONE ACETATE [Concomitant]
  4. ZOLEDRONOC ACID [Suspect]
     Indication: OSTEOPENIA
     Dosage: 5MG/100 ML PER YEAR
     Route: 042
     Dates: start: 20090401

REACTIONS (2)
  - THYROID DISORDER [None]
  - HYPOTHYROIDISM [None]
